FAERS Safety Report 6831519-1 (Version None)
Quarter: 2010Q3

REPORT INFORMATION
  Report Type: 
  Country: None (occurrence: None)
  Receive Date: 20100712
  Receipt Date: 20100628
  Transmission Date: 20110219
  Serious: Yes (Other)
  Sender: FDA-Public Use
  Company Number: PHEH2008US08419

PATIENT
  Sex: Female

DRUGS (1)
  1. ELIDEL [Suspect]

REACTIONS (2)
  - APPLICATION SITE DISCOLOURATION [None]
  - CEREBROVASCULAR ACCIDENT [None]
